FAERS Safety Report 6698698-0 (Version None)
Quarter: 2010Q2

REPORT INFORMATION
  Report Type: 
  Country: None (occurrence: None)
  Receive Date: 20100427
  Receipt Date: 20091104
  Transmission Date: 20101027
  Serious: No
  Sender: FDA-Public Use
  Company Number: US-ASTRAZENECA-2009SE24376

PATIENT
  Sex: Female

DRUGS (1)
  1. ZOMIG [Suspect]
     Indication: MIGRAINE
     Route: 048
     Dates: start: 19990101

REACTIONS (2)
  - ORAL DISCOMFORT [None]
  - PALPITATIONS [None]
